FAERS Safety Report 14742275 (Version 1)
Quarter: 2018Q2

REPORT INFORMATION
  Report Type: Spontaneous
  Country: US (occurrence: US)
  Receive Date: 20180405
  Receipt Date: 20180405
  Transmission Date: 20180711
  Serious: Yes (Other)
  Sender: FDA-Public Use
  Company Number: None

PATIENT
  Age: 67 Year
  Sex: Male
  Weight: 56.25 kg

DRUGS (1)
  1. CLOZARIL [Suspect]
     Active Substance: CLOZAPINE
     Indication: SCHIZOPHRENIA
     Route: 048
     Dates: start: 20180222, end: 20180303

REACTIONS (4)
  - Dyspnoea [None]
  - Pyrexia [None]
  - Chest pain [None]
  - Lethargy [None]

NARRATIVE: CASE EVENT DATE: 20180303
